FAERS Safety Report 11092599 (Version 1)
Quarter: 2015Q2

REPORT INFORMATION
  Report Type: Spontaneous
  Country: US (occurrence: None)
  Receive Date: 20150505
  Receipt Date: 20150505
  Transmission Date: 20150821
  Serious: Yes (Other)
  Sender: FDA-Public Use
  Company Number: None

PATIENT
  Age: 16 Year
  Sex: Female
  Weight: 77.57 kg

DRUGS (2)
  1. NEXPLANON [Suspect]
     Active Substance: ETONOGESTREL
  2. NEXPLANON [Concomitant]
     Active Substance: ETONOGESTREL

REACTIONS (1)
  - Menometrorrhagia [None]

NARRATIVE: CASE EVENT DATE: 20140226
